FAERS Safety Report 10717273 (Version 3)
Quarter: 2018Q4

REPORT INFORMATION
  Report Type: Spontaneous
  Country: US (occurrence: US)
  Receive Date: 20150116
  Receipt Date: 20181114
  Transmission Date: 20190204
  Serious: No
  Sender: FDA-Public Use
  Company Number: US-PFIZER INC-2015015937

PATIENT
  Age: 56 Year
  Sex: Female

DRUGS (1)
  1. RELPAX [Suspect]
     Active Substance: ELETRIPTAN HYDROBROMIDE
     Indication: HEADACHE
     Dosage: 40 MG, AS NEEDED [TAKE 1 TAB BY MOUTH ONCE DAILY AS NEEDED, MAY REPEAT IN 2 HOURS IF NECESSARY]
     Route: 048

REACTIONS (2)
  - Product use in unapproved indication [Unknown]
  - Migraine [Unknown]
